FAERS Safety Report 12564889 (Version 1)
Quarter: 2016Q3

REPORT INFORMATION
  Report Type: Spontaneous
  Country: US (occurrence: None)
  Receive Date: 20160715
  Receipt Date: 20160715
  Transmission Date: 20161109
  Serious: Yes (Disabling, Other)
  Sender: FDA-Public Use
  Company Number: None

PATIENT
  Age: 69 Year
  Sex: Female
  Weight: 59.88 kg

DRUGS (3)
  1. VITAMIN D3 [Concomitant]
     Active Substance: CHOLECALCIFEROL
  2. SYNTHROID [Concomitant]
     Active Substance: LEVOTHYROXINE SODIUM
  3. CIPROFLOXACIN BAYER HEALTHCARE PHARMACEUTICALS - GERMANY [Suspect]
     Active Substance: CIPROFLOXACIN
     Indication: URINARY TRACT INFECTION
     Dosage: 500 MG 14 TABLETS TWICE DAILY MOUTH
     Route: 048
     Dates: start: 20151207, end: 20151210

REACTIONS (13)
  - Arthralgia [None]
  - Hypokinesia [None]
  - Tendonitis [None]
  - Fatigue [None]
  - Gait disturbance [None]
  - Pain [None]
  - Depressed level of consciousness [None]
  - Joint swelling [None]
  - Decreased appetite [None]
  - Joint injury [None]
  - Tendon injury [None]
  - Insomnia [None]
  - Red blood cell sedimentation rate increased [None]

NARRATIVE: CASE EVENT DATE: 20151208
